FAERS Safety Report 8511123 (Version 3)
Quarter: 2013Q4

REPORT INFORMATION
  Report Type: Spontaneous
  Country: US (occurrence: US)
  Receive Date: 20120413
  Receipt Date: 20131029
  Transmission Date: 20140711
  Serious: No
  Sender: FDA-Public Use
  Company Number: US-ASTRAZENECA-2011SE71202

PATIENT
  Age: 61 Year
  Sex: Male
  Weight: 79.4 kg

DRUGS (3)
  1. NEXIUM [Suspect]
     Indication: GASTROOESOPHAGEAL REFLUX DISEASE
     Route: 048
  2. TOPROL XL [Suspect]
     Indication: HYPERTENSION
     Route: 048
     Dates: end: 20131015
  3. CRESTOR [Suspect]
     Indication: BLOOD CHOLESTEROL INCREASED
     Route: 048

REACTIONS (11)
  - Gastrooesophageal reflux disease [Unknown]
  - Aphagia [Unknown]
  - Malaise [Unknown]
  - Malaise [Unknown]
  - Palpitations [Unknown]
  - Vomiting [Unknown]
  - Depression [Unknown]
  - Blood cholesterol increased [Unknown]
  - Back pain [Unknown]
  - Arthralgia [Unknown]
  - Drug dose omission [Unknown]
